FAERS Safety Report 13581926 (Version 3)
Quarter: 2017Q3

REPORT INFORMATION
  Report Type: Spontaneous
  Country: BR (occurrence: BR)
  Receive Date: 20170525
  Receipt Date: 20170710
  Transmission Date: 20171127
  Serious: Yes (Other)
  Sender: FDA-Public Use
  Company Number: BR-PFIZER INC-2017224002

PATIENT
  Age: 44 Year
  Sex: Female

DRUGS (3)
  1. PURAN [Concomitant]
     Active Substance: LEVOTHYROXINE SODIUM
     Dosage: 88 MG, UNK
     Dates: start: 2010
  2. DOSTINEX [Suspect]
     Active Substance: CABERGOLINE
     Dosage: 1 DF, 2X/WEEK
     Dates: start: 201703
  3. DOSTINEX [Suspect]
     Active Substance: CABERGOLINE
     Indication: PITUITARY TUMOUR BENIGN
     Dosage: 1 DF, 2X/WEEK
     Dates: start: 2013, end: 201608

REACTIONS (4)
  - Head discomfort [Recovered/Resolved]
  - Eye disorder [Recovered/Resolved]
  - Neoplasm progression [Not Recovered/Not Resolved]
  - Optic nerve compression [Unknown]

NARRATIVE: CASE EVENT DATE: 201608
